FAERS Safety Report 20004511 (Version 1)
Quarter: 2021Q4

REPORT INFORMATION
  Report Type: Spontaneous
  Country: GB (occurrence: GB)
  Receive Date: 20211027
  Receipt Date: 20211027
  Transmission Date: 20220303
  Serious: Yes (Other)
  Sender: FDA-Public Use
  Company Number: None

PATIENT
  Age: 9 Year
  Sex: Male
  Weight: 29 kg

DRUGS (3)
  1. CLARITHROMYCIN [Suspect]
     Active Substance: CLARITHROMYCIN
     Indication: Lymphadenopathy
     Dosage: 250MG/5ML
     Dates: start: 20211007, end: 20211008
  2. CHLORPHENIRAMINE MALEATE [Concomitant]
     Active Substance: CHLORPHENIRAMINE MALEATE
     Dosage: 5 MILLILITER, QID (FOR 2 DAYS, TH)
     Dates: start: 20211007, end: 20211012
  3. PENICILLIN V [Concomitant]
     Active Substance: PENICILLIN V
     Dosage: 5 MILLILITER, QID (FOR 1 WEEK)
     Dates: start: 20211008, end: 20211015

REACTIONS (1)
  - Lip swelling [Recovered/Resolved]

NARRATIVE: CASE EVENT DATE: 20211007
